FAERS Safety Report 15977398 (Version 1)
Quarter: 2019Q1

REPORT INFORMATION
  Report Type: Spontaneous
  Country: FR (occurrence: FR)
  Receive Date: 20190218
  Receipt Date: 20190218
  Transmission Date: 20190418
  Serious: Yes (Other)
  Sender: FDA-Public Use
  Company Number: FR-MYLANLABS-2019M1014178

PATIENT
  Age: 50 Year
  Sex: Female
  Weight: 66 kg

DRUGS (2)
  1. GARDENAL /00023202/ [Suspect]
     Active Substance: PHENOBARBITAL SODIUM
     Indication: EPILEPSY
     Dosage: 100 MILLIGRAM, QD
     Route: 048
     Dates: start: 20180616
  2. LEVETIRACETAM MYLAN [Suspect]
     Active Substance: LEVETIRACETAM
     Indication: EPILEPSY
     Dosage: 1500 MILLIGRAM, QD
     Route: 041
     Dates: start: 20180616

REACTIONS (2)
  - Cholestasis [Recovered/Resolved]
  - Hepatocellular injury [Recovering/Resolving]

NARRATIVE: CASE EVENT DATE: 20180618
